FAERS Safety Report 5076402-X (Version None)
Quarter: 2006Q3

REPORT INFORMATION
  Report Type: 
  Country: None (occurrence: None)
  Receive Date: 20060807
  Receipt Date: 20060724
  Transmission Date: 20061208
  Serious: Yes (Other)
  Sender: FDA-Public Use
  Company Number: 2006072548

PATIENT
  Age: 41 Year
  Sex: Female
  Weight: 55 kg

DRUGS (7)
  1. LYRICA [Suspect]
     Indication: PAIN
     Dosage: 150 MG (75 MG, 2 IN 1 D), ORAL
     Route: 048
     Dates: start: 20050903, end: 20050101
  2. DOTHEP (DOSULEPIN HYDROCHLORIDE) [Concomitant]
  3. LEXAPRO [Concomitant]
  4. PROTHIADEN [Concomitant]
  5. FELDENE [Concomitant]
  6. PANAMAX (PARACETAMOL) [Concomitant]
  7. PANADEINE FORTE (CODEINE PHOSPHATE, PARACETAMOL) [Concomitant]

REACTIONS (2)
  - DERMATITIS ALLERGIC [None]
  - DRUG HYPERSENSITIVITY [None]
